FAERS Safety Report 19185699 (Version 2)
Quarter: 2021Q3

REPORT INFORMATION
  Report Type: Spontaneous
  Country: US (occurrence: US)
  Receive Date: 20210427
  Receipt Date: 20210705
  Transmission Date: 20211014
  Serious: No
  Sender: FDA-Public Use
  Company Number: US-KARYOPHARM-2021KPT000422

PATIENT

DRUGS (5)
  1. VELCADE [Concomitant]
     Active Substance: BORTEZOMIB
  2. DEXAMETHASONE. [Concomitant]
     Active Substance: DEXAMETHASONE
  3. XPOVIO [Suspect]
     Active Substance: SELINEXOR
     Indication: PLASMA CELL MYELOMA
     Dosage: 80 MG, 2X/WEEK
     Route: 048
     Dates: start: 20210322
  4. XPOVIO [Suspect]
     Active Substance: SELINEXOR
     Dosage: 80 MG, WEEKLY
     Route: 048
  5. XPOVIO [Suspect]
     Active Substance: SELINEXOR
     Dosage: 100 MG, WEEKLY
     Route: 048
     Dates: start: 2021

REACTIONS (11)
  - Faeces soft [Unknown]
  - Taste disorder [Unknown]
  - Constipation [Unknown]
  - Asthenia [Unknown]
  - Dry skin [Unknown]
  - Feeling cold [Unknown]
  - Dizziness [Unknown]
  - Platelet count decreased [Not Recovered/Not Resolved]
  - White blood cell count decreased [Not Recovered/Not Resolved]
  - Insomnia [Unknown]
  - Weight decreased [Unknown]

NARRATIVE: CASE EVENT DATE: 202103
